FAERS Safety Report 10262710 (Version 2)
Quarter: 2014Q2

REPORT INFORMATION
  Report Type: Report from Study
  Country: US (occurrence: US)
  Receive Date: 20140626
  Receipt Date: 20140626
  Transmission Date: 20141212
  Serious: Yes (Other)
  Sender: FDA-Public Use
  Company Number: US-MYLANLABS-2013S1012755

PATIENT
  Age: 86 Year
  Sex: Female

DRUGS (10)
  1. CLOZAPINE TABLETS [Suspect]
     Indication: ABNORMAL BEHAVIOUR
     Route: 048
     Dates: start: 201304, end: 20130529
  2. CLOZAPINE TABLETS [Suspect]
     Indication: AGGRESSION
     Route: 048
     Dates: start: 201304, end: 20130529
  3. CLOZAPINE TABLETS [Suspect]
     Indication: PSYCHOTIC DISORDER
     Route: 048
     Dates: start: 201304, end: 20130529
  4. CLOZAPINE TABLETS [Suspect]
     Indication: TREMOR
     Route: 048
     Dates: start: 201304, end: 20130529
  5. HALDOL [Concomitant]
  6. ARICEPT [Concomitant]
  7. NAMENDA [Concomitant]
  8. REMERON [Concomitant]
  9. TRAZODONE [Concomitant]
  10. DEPAKOTE [Concomitant]

REACTIONS (2)
  - Granulocytopenia [Recovering/Resolving]
  - Leukopenia [Recovered/Resolved]
